FAERS Safety Report 10233633 (Version 1)
Quarter: 2014Q2

REPORT INFORMATION
  Report Type: Spontaneous
  Country: US (occurrence: US)
  Receive Date: 20140612
  Receipt Date: 20140612
  Transmission Date: 20141212
  Serious: Yes (Other)
  Sender: FDA-Public Use
  Company Number: US-SA-2014SA074671

PATIENT
  Age: 79 Year
  Sex: Female

DRUGS (1)
  1. IRBESARTAN [Suspect]
     Indication: PRODUCT USED FOR UNKNOWN INDICATION
     Dosage: STRENGTH: 300 MG
     Route: 065

REACTIONS (8)
  - Choking [Unknown]
  - Gait disturbance [Unknown]
  - Hypersensitivity [Unknown]
  - Confusional state [Unknown]
  - Dizziness [Unknown]
  - Dry throat [Unknown]
  - Fatigue [Unknown]
  - Unevaluable event [Unknown]
